FAERS Safety Report 22950350 (Version 4)
Quarter: 2024Q3

REPORT INFORMATION
  Report Type: Spontaneous
  Country: None (occurrence: US)
  Receive Date: 20230915
  Receipt Date: 20240823
  Transmission Date: 20241017
  Serious: Yes (Hospitalization, Other)
  Sender: LUNDBECK
  Company Number: US-LUNDBECK-DKLU3067639

PATIENT

DRUGS (12)
  1. CLOBAZAM [Suspect]
     Active Substance: CLOBAZAM
     Indication: Epilepsy
     Dosage: 10 MG, BID
     Dates: start: 20220416, end: 20220418
  2. CLOBAZAM [Suspect]
     Active Substance: CLOBAZAM
     Indication: Seizure
  3. TOPIRAMATE [Suspect]
     Active Substance: TOPIRAMATE
     Indication: Seizure
     Dosage: 300 MG, QD
  4. TOPIRAMATE [Suspect]
     Active Substance: TOPIRAMATE
     Indication: Epilepsy
     Dosage: 200 MG, BID
     Dates: start: 20220226
  5. TOPIRAMATE [Suspect]
     Active Substance: TOPIRAMATE
     Dosage: 150 MG, BID
     Dates: start: 202204, end: 202204
  6. DOXEPIN [Suspect]
     Active Substance: DOXEPIN
     Indication: Insomnia
     Dosage: 75 MG, HS (1.10 MG/KG NIGHTLY)
     Dates: start: 20210108
  7. DOXEPIN [Suspect]
     Active Substance: DOXEPIN
     Indication: Depression
     Dosage: 150 MG, HS (2.21 MG/KG NIGHTLY)
     Dates: start: 20210623
  8. DOXEPIN [Suspect]
     Active Substance: DOXEPIN
     Dosage: 200 MG, HS (2.94 MG/KG, NIGHTLY)
     Dates: start: 20211015
  9. DOXEPIN [Suspect]
     Active Substance: DOXEPIN
     Dosage: 300 MG, HS (4.41 MG/KG NIGHTLY)
     Dates: start: 20220407, end: 202204
  10. LEVETIRACETAM [Concomitant]
     Active Substance: LEVETIRACETAM
     Indication: Epilepsy
     Dosage: 1000 MG, BID
     Dates: start: 20211106
  11. VALPROIC ACID [Concomitant]
     Active Substance: VALPROIC ACID
     Indication: Epilepsy
     Dosage: 500 MG, QD
  12. GUANFACINE [Concomitant]
     Active Substance: GUANFACINE
     Indication: Product used for unknown indication
     Dosage: 3 MG, QD

REACTIONS (10)
  - Confusional state [Recovered/Resolved]
  - Electrocardiogram QRS complex prolonged [Recovered/Resolved]
  - Toxicity to various agents [Recovered/Resolved]
  - Drug-genetic interaction [Recovered/Resolved]
  - Drug interaction [Recovered/Resolved]
  - Bundle branch block right [Recovered/Resolved]
  - Enuresis [Recovered/Resolved]
  - Generalised tonic-clonic seizure [Recovered/Resolved]
  - Fall [Unknown]
  - Ataxia [Recovered/Resolved]

NARRATIVE: CASE EVENT DATE: 20220101
